FAERS Safety Report 5038137-9 (Version None)
Quarter: 2006Q2

REPORT INFORMATION
  Report Type: 
  Country: None (occurrence: None)
  Receive Date: 20060623
  Receipt Date: 20060614
  Transmission Date: 20061013
  Serious: Yes (Disabling)
  Sender: FDA-Public Use
  Company Number: WAES0603USA03873

PATIENT
  Age: 35 Year
  Sex: Male
  Weight: 81.6475 kg

DRUGS (15)
  1. CRIXIVAN [Suspect]
     Indication: HIV INFECTION
     Dosage: 1600 MG/DAILY/PO
     Route: 048
     Dates: start: 20051008
  2. [THERAPY UNSPECIFIED] 150 MG [Suspect]
     Indication: HIV INFECTION
     Dosage: 150MG/BID/PO
     Route: 048
     Dates: start: 20051006
  3. RITOVINAVIR [Suspect]
     Indication: HIV INFECTION
     Dosage: 100 MG/BID/PO
     Route: 048
     Dates: start: 20050602
  4. AMBIEN [Concomitant]
  5. BACTRIM [Concomitant]
  6. EFFEXOR [Concomitant]
  7. SEROSTIM [Concomitant]
  8. SUSTIVA [Concomitant]
  9. TRUVADA [Concomitant]
  10. VALTREX [Concomitant]
  11. ZITHROMAX [Concomitant]
  12. ALLOPURINOL [Concomitant]
  13. DIDANOSINE [Concomitant]
  14. LISINOPRIL [Concomitant]
  15. PSYLLIUM HUSK [Concomitant]

REACTIONS (3)
  - ARTHRALGIA [None]
  - GROIN PAIN [None]
  - OSTEONECROSIS [None]
